FAERS Safety Report 5015557-X (Version None)
Quarter: 2006Q2

REPORT INFORMATION
  Report Type: 
  Country: None (occurrence: None)
  Receive Date: 20060601
  Receipt Date: 20060524
  Transmission Date: 20061013
  Serious: Yes (Other)
  Sender: FDA-Public Use
  Company Number: US-AVENTIS-200614717US

PATIENT
  Sex: Female
  Weight: 91 kg

DRUGS (2)
  1. ALLEGRA [Suspect]
     Indication: SEASONAL ALLERGY
     Dates: start: 20020301, end: 20050101
  2. SSRI [Concomitant]
     Dosage: DOSE: UNK

REACTIONS (6)
  - BILIARY CIRRHOSIS PRIMARY [None]
  - BREAST CANCER FEMALE [None]
  - EYE DISCHARGE [None]
  - GASTRIC ULCER [None]
  - MERALGIA PARAESTHETICA [None]
  - RHINORRHOEA [None]
